FAERS Safety Report 10091763 (Version 1)
Quarter: 2014Q2

REPORT INFORMATION
  Report Type: Spontaneous
  Country: US (occurrence: US)
  Receive Date: 20140421
  Receipt Date: 20140421
  Transmission Date: 20141212
  Serious: No
  Sender: FDA-Public Use
  Company Number: US-PURDUE-USA-2002-0002759

PATIENT
  Age: 58 Year
  Sex: Female
  Weight: 58.96 kg

DRUGS (3)
  1. OXYIR CAPSULES 5 MG [Suspect]
     Indication: PAIN
     Dosage: 5 MG, SEE TEXT
     Route: 048
     Dates: start: 20020920
  2. DURAGESIC                          /00174601/ [Concomitant]
     Indication: PAIN
     Dosage: 50 MCG/HR, Q72H
     Route: 062
     Dates: start: 20020920
  3. EFFEXOR [Concomitant]
     Indication: DEPRESSION
     Dosage: 75 MG, BID
     Route: 048
     Dates: start: 20020926

REACTIONS (1)
  - Drug ineffective [Unknown]
